FAERS Safety Report 8936467 (Version 2)
Quarter: 2012Q4

REPORT INFORMATION
  Report Type: Report from Study
  Country: US (occurrence: US)
  Receive Date: 20121130
  Receipt Date: 20121206
  Transmission Date: 20130627
  Serious: Yes (Death)
  Sender: FDA-Public Use
  Company Number: US-SANOFI-AVENTIS-2012SA088191

PATIENT
  Age: 69 Year
  Sex: Female

DRUGS (1)
  1. AFLIBERCEPT [Suspect]
     Indication: ENDOMETRIAL CANCER
     Dosage: dose: 4 mg/kg intravenous q14 days (1 cycle equaled two infusions or 28 days)
     Route: 042

REACTIONS (1)
  - Arterial rupture [Fatal]
